FAERS Safety Report 10184659 (Version 1)
Quarter: 2014Q2

REPORT INFORMATION
  Report Type: Spontaneous
  Country: JP (occurrence: JP)
  Receive Date: 20140521
  Receipt Date: 20140521
  Transmission Date: 20141212
  Serious: Yes (Other)
  Sender: FDA-Public Use
  Company Number: JP-ROCHE-1403539

PATIENT
  Age: 69 Year
  Sex: Male
  Weight: 57 kg

DRUGS (8)
  1. ACTEMRA [Suspect]
     Indication: RHEUMATOID ARTHRITIS
     Route: 058
     Dates: start: 20131219, end: 20140124
  2. PREDNISOLONE [Concomitant]
     Indication: RHEUMATOID ARTHRITIS
     Route: 065
     Dates: start: 20131004, end: 20131107
  3. PREDNISOLONE [Concomitant]
     Indication: RHEUMATOID ARTHRITIS
     Route: 065
     Dates: start: 20131108, end: 20131206
  4. PREDNISOLONE [Concomitant]
     Indication: RHEUMATOID ARTHRITIS
     Route: 065
     Dates: start: 20131213, end: 20140109
  5. ISCOTIN [Concomitant]
     Indication: PROPHYLAXIS
     Route: 048
     Dates: start: 20131219
  6. PYDOXAL [Concomitant]
     Indication: PROPHYLAXIS
     Route: 048
     Dates: start: 20131219
  7. CONIEL [Concomitant]
     Indication: HYPERTENSION
     Route: 048
  8. BAYASPIRIN [Concomitant]
     Indication: MYOCARDIAL INFARCTION
     Route: 048

REACTIONS (1)
  - Renal failure [Recovered/Resolved with Sequelae]
